FAERS Safety Report 9581451 (Version 1)
Quarter: 2013Q4

REPORT INFORMATION
  Report Type: Spontaneous
  Country: US (occurrence: US)
  Receive Date: 20131002
  Receipt Date: 20131002
  Transmission Date: 20140711
  Serious: No
  Sender: FDA-Public Use
  Company Number: US-PURDUE-USA-2012-0081437

PATIENT
  Sex: Male

DRUGS (2)
  1. BUTRANS [Suspect]
     Indication: NECK PAIN
     Dosage: 5 MCG, Q1H
     Route: 062
  2. IBUPROFEN [Concomitant]
     Indication: NECK PAIN
     Dosage: 800 MG, QOD

REACTIONS (1)
  - Feeling abnormal [Recovered/Resolved]
